FAERS Safety Report 7207272-9 (Version None)
Quarter: 2011Q1

REPORT INFORMATION
  Report Type: 
  Country: None (occurrence: None)
  Receive Date: 20110103
  Receipt Date: 20101227
  Transmission Date: 20110831
  Serious: Yes (Death, Other)
  Sender: FDA-Public Use
  Company Number: FR-BRISTOL-MYERS SQUIBB COMPANY-15466493

PATIENT
  Age: 49 Year
  Sex: Female

DRUGS (11)
  1. LEVOTHYROX [Concomitant]
  2. DEBRIDAT [Concomitant]
  3. GLUCOPHAGE [Suspect]
     Indication: TYPE 2 DIABETES MELLITUS
     Route: 048
  4. EFFERALGAN [Concomitant]
  5. AMLOR [Concomitant]
  6. MOPRAL [Concomitant]
  7. TAHOR [Concomitant]
  8. HYPERIUM [Concomitant]
  9. DIFFU-K [Concomitant]
  10. PAROXETINE [Concomitant]
  11. CORTANCYL [Concomitant]

REACTIONS (2)
  - RENAL IMPAIRMENT [None]
  - LACTIC ACIDOSIS [None]
